FAERS Safety Report 7968369 (Version 4)
Quarter: 2014Q2

REPORT INFORMATION
  Report Type: Spontaneous
  Country: US (occurrence: US)
  Receive Date: 20110601
  Receipt Date: 20140418
  Transmission Date: 20141212
  Serious: Yes (Other)
  Sender: FDA-Public Use
  Company Number: US-JNJFOC-20110507900

PATIENT
  Age: 62 Year
  Sex: Female
  Weight: 77.11 kg

DRUGS (13)
  1. REMICADE [Suspect]
     Indication: COLITIS
     Route: 042
     Dates: start: 20110315
  2. REMICADE [Suspect]
     Indication: COLITIS
     Route: 042
     Dates: start: 20110118
  3. REMICADE [Suspect]
     Indication: COLITIS
     Route: 042
     Dates: start: 20110510
  4. REMICADE [Suspect]
     Indication: COLITIS
     Route: 042
     Dates: start: 201006
  5. REMICADE [Suspect]
     Indication: RHEUMATOID ARTHRITIS
     Route: 042
     Dates: start: 201006
  6. REMICADE [Suspect]
     Indication: RHEUMATOID ARTHRITIS
     Route: 042
     Dates: start: 20110118
  7. REMICADE [Suspect]
     Indication: RHEUMATOID ARTHRITIS
     Route: 042
     Dates: start: 20110510
  8. REMICADE [Suspect]
     Indication: RHEUMATOID ARTHRITIS
     Route: 042
     Dates: start: 20110315
  9. SIMVASTATIN [Concomitant]
     Indication: BLOOD CHOLESTEROL INCREASED
     Route: 048
  10. METHOTREXATE [Concomitant]
     Indication: RHEUMATOID ARTHRITIS
     Dosage: 4 IN 1 WEEK
     Route: 048
     Dates: start: 2010
  11. GLYBURIDE [Concomitant]
     Indication: DIABETES MELLITUS
     Route: 048
     Dates: start: 2009
  12. FOLIC ACID [Concomitant]
     Indication: NUTRITIONAL SUPPLEMENTATION
     Route: 048
     Dates: start: 2010
  13. ARAVA [Concomitant]
     Indication: RHEUMATOID ARTHRITIS
     Route: 048

REACTIONS (5)
  - Muscle spasms [Recovered/Resolved]
  - Blood pressure systolic increased [Recovered/Resolved]
  - Infusion related reaction [Recovered/Resolved]
  - Vomiting [Recovered/Resolved]
  - Diarrhoea [Recovered/Resolved]
